FAERS Safety Report 8557317 (Version 4)
Quarter: 2013Q2

REPORT INFORMATION
  Report Type: Spontaneous
  Country: GB (occurrence: GB)
  Receive Date: 20120511
  Receipt Date: 20130423
  Transmission Date: 20140414
  Serious: Yes (Hospitalization, Other)
  Sender: FDA-Public Use
  Company Number: PHFR2012GB000957

PATIENT
  Age: 40 Year
  Sex: Male

DRUGS (2)
  1. CLOZARIL [Suspect]
     Indication: SCHIZOPHRENIA
     Dosage: UNK UKN, UNK
     Route: 048
     Dates: start: 20110401
  2. LAMOTRIGINE [Concomitant]
     Indication: SCHIZOPHRENIA
     Dosage: UNK UKN, UNK
     Dates: start: 2012

REACTIONS (7)
  - Malaise [Unknown]
  - Paranoia [Unknown]
  - Infection [Not Recovered/Not Resolved]
  - Starvation [Unknown]
  - Neutrophil count increased [Recovered/Resolved]
  - Delusion [Unknown]
  - Leukocytosis [Recovered/Resolved]
